FAERS Safety Report 9150468 (Version 1)
Quarter: 2013Q1

REPORT INFORMATION
  Report Type: Spontaneous
  Country: AR (occurrence: AR)
  Receive Date: 20130308
  Receipt Date: 20130308
  Transmission Date: 20140127
  Serious: Yes (Death, Hospitalization, Other)
  Sender: FDA-Public Use
  Company Number: AR-PFIZER INC-2013077418

PATIENT
  Age: 56 Year
  Sex: Male

DRUGS (4)
  1. SUNITINIB MALATE [Suspect]
     Indication: LUNG NEOPLASM MALIGNANT
     Dosage: 50 MG, 4X/WEEK
     Dates: start: 201004
  2. EVEROLIMUS [Suspect]
     Dosage: UNK
     Dates: start: 201203
  3. SORAFENIB [Suspect]
     Dosage: UNK
     Dates: start: 201208
  4. ZOLEDRONIC ACID [Concomitant]
     Dosage: UNK
     Dates: start: 201206

REACTIONS (23)
  - Death [Fatal]
  - Off label use [Fatal]
  - Weight decreased [Unknown]
  - Pyrexia [Unknown]
  - Back pain [Unknown]
  - Convulsion [Unknown]
  - Hypertension [Unknown]
  - Disease progression [Unknown]
  - Lung neoplasm malignant [Unknown]
  - Epistaxis [Unknown]
  - Anaemia [Unknown]
  - Blood thyroid stimulating hormone increased [Unknown]
  - Cough [Unknown]
  - Chest pain [Unknown]
  - Stomatitis [Unknown]
  - Mediastinal mass [Unknown]
  - Diarrhoea [Unknown]
  - Proteinuria [Unknown]
  - Asthenia [Unknown]
  - Hypercalcaemia [Unknown]
  - Leukopenia [Unknown]
  - Blood lactate dehydrogenase increased [Unknown]
  - Creatinine renal clearance abnormal [Unknown]
